FAERS Safety Report 8587301-0 (Version None)
Quarter: 2012Q3

REPORT INFORMATION
  Report Type: 
  Country: None (occurrence: None)
  Receive Date: 20120810
  Receipt Date: 20120503
  Transmission Date: 20120928
  Serious: No
  Sender: FDA-Public Use
  Company Number: US-ASTRAZENECA-2012SE28678

PATIENT
  Sex: Female

DRUGS (4)
  1. FASLODEX [Suspect]
     Route: 030
  2. ARIMIDEX [Suspect]
     Route: 048
  3. HERCEPTIN [Concomitant]
  4. TYKERB [Concomitant]

REACTIONS (1)
  - OESTRADIOL INCREASED [None]
